FAERS Safety Report 7931077-4 (Version None)
Quarter: 2011Q4

REPORT INFORMATION
  Report Type: 
  Country: None (occurrence: None)
  Receive Date: 20111118
  Receipt Date: 20111118
  Transmission Date: 20120403
  Serious: No
  Sender: FDA-Public Use
  Company Number: None

PATIENT
  Sex: Male
  Weight: 97.977 kg

DRUGS (1)
  1. PROSCAR [Suspect]
     Dosage: 30 PER MONTH 1 PER DAY
     Dates: start: 20100101, end: 20110101

REACTIONS (3)
  - ERECTILE DYSFUNCTION [None]
  - EJACULATION DISORDER [None]
  - LIBIDO DECREASED [None]
